FAERS Safety Report 6905715-9 (Version None)
Quarter: 2010Q3

REPORT INFORMATION
  Report Type: 
  Country: None (occurrence: None)
  Receive Date: 20100730
  Receipt Date: 20100713
  Transmission Date: 20110219
  Serious: No
  Sender: FDA-Public Use
  Company Number: 2010070027

PATIENT
  Age: 40 Year
  Sex: Female
  Weight: 53.0709 kg

DRUGS (1)
  1. EDLUAR [Suspect]
     Indication: MIDDLE INSOMNIA
     Dosage: 10 MG (10 MG, 1 IN 1 D), ORAL
     Route: 048
     Dates: start: 20100712

REACTIONS (3)
  - FEELING ABNORMAL [None]
  - INCORRECT ROUTE OF DRUG ADMINISTRATION [None]
  - MIDDLE INSOMNIA [None]
